FAERS Safety Report 20235792 (Version 1)
Quarter: 2021Q4

REPORT INFORMATION
  Report Type: Other
  Country: GB (occurrence: GB)
  Receive Date: 20211228
  Receipt Date: 20211228
  Transmission Date: 20220304
  Serious: No
  Sender: FDA-Public Use
  Company Number: None

PATIENT
  Age: 86 Year
  Sex: Female
  Weight: 49 kg

DRUGS (25)
  1. MEMANTINE HYDROCHLORIDE [Suspect]
     Active Substance: MEMANTINE HYDROCHLORIDE
     Indication: Product used for unknown indication
     Dosage: UNK, (TABLET)
     Route: 048
  2. BISOPROLOL [Concomitant]
     Active Substance: BISOPROLOL
     Indication: Product used for unknown indication
     Dosage: 1 DOSAGE FORM, QD (1 TABLET ONCE DAILY)
     Route: 065
     Dates: start: 20211116, end: 20211208
  3. BISOPROLOL [Concomitant]
     Active Substance: BISOPROLOL
     Dosage: 1 DOSAGE FORM, QD (1 TABLET ONCE DAILY)
     Route: 065
     Dates: start: 20211018, end: 20211116
  4. BISOPROLOL [Concomitant]
     Active Substance: BISOPROLOL
     Dosage: 1 DOSAGE FORM, QD (1 TABLET ONCE DAILY)
     Route: 065
     Dates: start: 20210921
  5. BISOPROLOL [Concomitant]
     Active Substance: BISOPROLOL
     Dosage: 1 DOSAGE FORM, QD (1 TABLET ONCE DAILY)
     Route: 065
     Dates: start: 20211018
  6. BISOPROLOL [Concomitant]
     Active Substance: BISOPROLOL
     Dosage: 1 DOSAGE FORM, QD (1 TABLET ONCE DAILY)
     Route: 065
     Dates: start: 20211116
  7. BISOPROLOL [Concomitant]
     Active Substance: BISOPROLOL
     Dosage: 1 DOSAGE FORM, QD (1 TABLET ONCE DAILY)
     Route: 065
     Dates: start: 20210921, end: 20211018
  8. DIGOXIN [Concomitant]
     Active Substance: DIGOXIN
     Indication: Product used for unknown indication
     Dosage: 1 DOSAGE FORM, QD
     Route: 065
     Dates: start: 20211116
  9. DIGOXIN [Concomitant]
     Active Substance: DIGOXIN
     Dosage: 1 DOSAGE FORM, QD
     Route: 065
     Dates: start: 20211116, end: 20211208
  10. DIGOXIN [Concomitant]
     Active Substance: DIGOXIN
     Dosage: 1 DOSAGE FORM, QD
     Route: 065
     Dates: start: 20210921
  11. DIGOXIN [Concomitant]
     Active Substance: DIGOXIN
     Dosage: 1 DOSAGE FORM, QD
     Route: 065
     Dates: start: 20210921, end: 20211018
  12. DIGOXIN [Concomitant]
     Active Substance: DIGOXIN
     Dosage: 1 DOSAGE FORM, QD
     Route: 065
     Dates: start: 20211018, end: 20211116
  13. DIGOXIN [Concomitant]
     Active Substance: DIGOXIN
     Dosage: 1 DOSAGE FORM, QD
     Route: 065
     Dates: start: 20211018
  14. DIGOXIN [Concomitant]
     Active Substance: DIGOXIN
     Dosage: 1 DOSAGE FORM, QD
     Route: 065
     Dates: start: 20210921, end: 20211018
  15. FUROSEMIDE [Concomitant]
     Active Substance: FUROSEMIDE
     Indication: Product used for unknown indication
     Dosage: 1 DOSAGE FORM, QD
     Route: 065
     Dates: start: 20211116, end: 20211208
  16. FUROSEMIDE [Concomitant]
     Active Substance: FUROSEMIDE
     Dosage: 1 DOSAGE FORM, QD
     Route: 065
     Dates: start: 20211116
  17. FUROSEMIDE [Concomitant]
     Active Substance: FUROSEMIDE
     Dosage: 1 DOSAGE FORM, QD
     Route: 065
     Dates: start: 20210921
  18. FUROSEMIDE [Concomitant]
     Active Substance: FUROSEMIDE
     Dosage: 1 DOSAGE FORM, QD
     Route: 065
     Dates: start: 20211018, end: 20211116
  19. FUROSEMIDE [Concomitant]
     Active Substance: FUROSEMIDE
     Dosage: 1 DOSAGE FORM, QD
     Route: 065
     Dates: start: 20211018
  20. FUROSEMIDE [Concomitant]
     Active Substance: FUROSEMIDE
     Dosage: 1 DOSAGE FORM, QD (WITH FOOD)
     Route: 065
     Dates: start: 20210920, end: 20211018
  21. RIVAROXABAN [Concomitant]
     Active Substance: RIVAROXABAN
     Indication: Product used for unknown indication
     Dosage: 1 DOSAGE FORM, QD (ONE TO BE TAKEN ONCE DAILY WITH FOOD)
     Route: 065
     Dates: start: 20210920, end: 20211018
  22. RIVAROXABAN [Concomitant]
     Active Substance: RIVAROXABAN
     Dosage: 1 DOSAGE FORM, QD (ONE TO BE TAKEN ONCE DAILY WITH FOOD)
     Route: 065
     Dates: start: 20210921
  23. RIVAROXABAN [Concomitant]
     Active Substance: RIVAROXABAN
     Dosage: 1 DOSAGE FORM, QD (ONE TO BE TAKEN ONCE DAILY WITH FOOD)
     Route: 065
     Dates: start: 20211018, end: 20211116
  24. RIVAROXABAN [Concomitant]
     Active Substance: RIVAROXABAN
     Dosage: 1 DOSAGE FORM, QD (ONE TO BE TAKEN ONCE DAILY WITH FOOD)
     Route: 065
     Dates: start: 20211018
  25. RIVAROXABAN [Concomitant]
     Active Substance: RIVAROXABAN
     Dosage: 1 DOSAGE FORM, QD (ONE TO BE TAKEN ONCE DAILY WITH FOOD)
     Route: 065
     Dates: start: 20211116

REACTIONS (2)
  - Somnolence [Unknown]
  - Adverse drug reaction [Recovered/Resolved]
